FAERS Safety Report 8184365-3 (Version None)
Quarter: 2012Q1

REPORT INFORMATION
  Report Type: 
  Country: None (occurrence: None)
  Receive Date: 20120305
  Receipt Date: 20120221
  Transmission Date: 20120608
  Serious: Yes (Hospitalization, Other)
  Sender: FDA-Public Use
  Company Number: US-ELI_LILLY_AND_COMPANY-US201201000448

PATIENT
  Sex: Female
  Weight: 97.052 kg

DRUGS (3)
  1. MILNACIPRAN HYDROCHLORIDE [Concomitant]
  2. SIMVASTATIN [Concomitant]
  3. CYMBALTA [Suspect]
     Indication: PAIN
     Dosage: 60 MG, QD
     Dates: start: 20110901

REACTIONS (19)
  - APATHY [None]
  - INFLAMMATION [None]
  - LOSS OF CONSCIOUSNESS [None]
  - WEIGHT INCREASED [None]
  - AMNESIA [None]
  - HYPERSOMNIA [None]
  - COLD SWEAT [None]
  - PAIN [None]
  - GAIT DISTURBANCE [None]
  - FALL [None]
  - DEHYDRATION [None]
  - DISORIENTATION [None]
  - HEADACHE [None]
  - HEAD INJURY [None]
  - WEIGHT DECREASED [None]
  - SUICIDAL IDEATION [None]
  - DEPRESSION [None]
  - FATIGUE [None]
  - DIZZINESS [None]
